FAERS Safety Report 18510452 (Version 1)
Quarter: 2020Q4

REPORT INFORMATION
  Report Type: Spontaneous
  Country: US (occurrence: US)
  Receive Date: 20201116
  Receipt Date: 20201116
  Transmission Date: 20210114
  Serious: Yes (Other)
  Sender: FDA-Public Use
  Company Number: None

PATIENT
  Age: 45 Year
  Sex: Male
  Weight: 75.75 kg

DRUGS (1)
  1. LEVOTHYROXINE. [Suspect]
     Active Substance: LEVOTHYROXINE
     Indication: HYPOTHYROIDISM
     Dates: start: 20200604, end: 20201109

REACTIONS (5)
  - Insomnia [None]
  - Nervousness [None]
  - Headache [None]
  - Nausea [None]
  - Hot flush [None]

NARRATIVE: CASE EVENT DATE: 20201112
